FAERS Safety Report 5285218-0 (Version None)
Quarter: 2007Q2

REPORT INFORMATION
  Report Type: 
  Country: None (occurrence: None)
  Receive Date: 20070403
  Receipt Date: 20070323
  Transmission Date: 20071010
  Serious: Yes (Disabling, Other)
  Sender: FDA-Public Use
  Company Number: US-PFIZER INC-2007023295

PATIENT
  Sex: Male

DRUGS (2)
  1. LYRICA [Suspect]
     Indication: BIPOLAR DISORDER
     Dosage: DAILY DOSE:900MG
  2. ALL OTHER THERAPEUTIC PRODUCTS [Concomitant]

REACTIONS (10)
  - BALANCE DISORDER [None]
  - COGNITIVE DISORDER [None]
  - CRYING [None]
  - DIARRHOEA [None]
  - DIPLOPIA [None]
  - FEELING DRUNK [None]
  - MEMORY IMPAIRMENT [None]
  - MUTISM [None]
  - NAUSEA [None]
  - TREMOR [None]
